FAERS Safety Report 8973500 (Version 5)
Quarter: 2013Q1

REPORT INFORMATION
  Report Type: Spontaneous
  Country: US (occurrence: US)
  Receive Date: 20121218
  Receipt Date: 20130212
  Transmission Date: 20140127
  Serious: Yes (Death, Hospitalization, Other)
  Sender: FDA-Public Use
  Company Number: US-BAXTER-2012BAX027474

PATIENT
  Age: 52 Year
  Sex: Female

DRUGS (6)
  1. DIANEAL LOW CALCIUM [Suspect]
     Indication: PERITONEAL DIALYSIS
     Route: 033
  2. DIANEAL LOW CALCIUM [Suspect]
     Route: 033
     Dates: end: 20121225
  3. DIANEAL LOW CALCIUM [Suspect]
     Indication: PERITONEAL DIALYSIS
     Route: 033
  4. DIANEAL LOW CALCIUM [Suspect]
     Route: 033
     Dates: end: 20121225
  5. DIANEAL LOW CALCIUM [Suspect]
     Indication: PERITONEAL DIALYSIS
     Route: 033
  6. DIANEAL LOW CALCIUM [Suspect]
     Route: 033
     Dates: end: 20121225

REACTIONS (13)
  - Hepatic enzyme increased [Fatal]
  - Blood potassium increased [Fatal]
  - Hepatic failure [Fatal]
  - Sepsis [Fatal]
  - Thrombocytopenia [Fatal]
  - Renal failure chronic [Fatal]
  - Hypotension [Fatal]
  - Nephrogenic anaemia [Fatal]
  - Breast cancer [Fatal]
  - Malnutrition [Fatal]
  - Septic shock [Unknown]
  - Peritonitis bacterial [Not Recovered/Not Resolved]
  - Peritoneal dialysis complication [Unknown]
